FAERS Safety Report 9767733 (Version 3)
Quarter: 2014Q1

REPORT INFORMATION
  Report Type: Report from Study
  Country: US (occurrence: US)
  Receive Date: 20131217
  Receipt Date: 20140107
  Transmission Date: 20141002
  Serious: Yes (Hospitalization)
  Sender: FDA-Public Use
  Company Number: US-JNJFOC-20131206475

PATIENT
  Age: 13 Year
  Sex: Female
  Weight: 67 kg

DRUGS (9)
  1. REMICADE [Suspect]
     Indication: CROHN^S DISEASE
     Route: 042
     Dates: start: 20070725
  2. 6-MERCAPTOPURINE [Concomitant]
     Indication: CROHN^S DISEASE
     Route: 065
  3. 5-ASA [Concomitant]
     Route: 048
  4. CELEXA [Concomitant]
     Route: 065
  5. CATAPRES [Concomitant]
     Route: 065
  6. ZYRTEC [Concomitant]
     Route: 065
  7. OMEPRAZOLE [Concomitant]
     Route: 065
  8. PIMOZIDE [Concomitant]
     Route: 065
  9. TRETINOIN [Concomitant]
     Route: 065

REACTIONS (1)
  - Crohn^s disease [Recovered/Resolved]
